FAERS Safety Report 5871538-5 (Version None)
Quarter: 2008Q3

REPORT INFORMATION
  Report Type: 
  Country: None (occurrence: None)
  Receive Date: 20080905
  Receipt Date: 20080407
  Transmission Date: 20090109
  Serious: No
  Sender: FDA-Public Use
  Company Number: A0721364A

PATIENT
  Age: 71 Year
  Sex: Male

DRUGS (6)
  1. REQUIP [Suspect]
     Indication: PARKINSON'S DISEASE
     Dosage: 2MG FOUR TIMES PER DAY
     Route: 048
     Dates: start: 20011119
  2. SINEMET [Concomitant]
  3. NORVASC [Concomitant]
  4. COMTAN [Concomitant]
  5. VITAMIN [Concomitant]
  6. VIT E [Concomitant]

REACTIONS (2)
  - DRUG ADMINISTRATION ERROR [None]
  - SOMNOLENCE [None]
